FAERS Safety Report 24801314 (Version 1)
Quarter: 2025Q1

REPORT INFORMATION
  Report Type: Spontaneous
  Country: FR (occurrence: FR)
  Receive Date: 20250102
  Receipt Date: 20250102
  Transmission Date: 20250408
  Serious: Yes (Other)
  Sender: MYLAN
  Company Number: FR-PFM-2024-05103

PATIENT
  Age: 76 Year
  Sex: Female

DRUGS (5)
  1. ESOMEPRAZOLE [Suspect]
     Active Substance: ESOMEPRAZOLE
     Indication: Dyspepsia
     Dosage: 20 MILLIGRAM, QD (20 MG PER DAY)
     Route: 065
     Dates: start: 202212
  2. LEVACETYLLEUCINE [Suspect]
     Active Substance: LEVACETYLLEUCINE
     Indication: Tinnitus
     Dosage: 1 DF, TID (3/DAY) (MORNING, NOON AND EVENING) (1 DOSAGE FORM, QD)
     Route: 048
     Dates: start: 20240913, end: 20240913
  3. LEVACETYLLEUCINE [Suspect]
     Active Substance: LEVACETYLLEUCINE
     Route: 065
     Dates: start: 20240919
  4. LORAZEPAM [Suspect]
     Active Substance: LORAZEPAM
     Indication: Insomnia
     Dosage: 1 MILLIGRAM, QD (1 MG PER DAY)
     Route: 065
     Dates: start: 202301
  5. PROPRANOLOL [Suspect]
     Active Substance: PROPRANOLOL HYDROCHLORIDE
     Indication: Product used for unknown indication
     Dosage: 40 MILLIGRAM, QD (40 MG PER DAY)
     Route: 065
     Dates: start: 202212

REACTIONS (6)
  - Respiratory depression [Recovered/Resolved]
  - Chest discomfort [Recovered/Resolved]
  - Hypersensitivity [Recovered/Resolved]
  - Product use in unapproved indication [Unknown]
  - Inappropriate schedule of product administration [Unknown]
  - Off label use [Unknown]

NARRATIVE: CASE EVENT DATE: 20240913
